FAERS Safety Report 11371101 (Version 1)
Quarter: 2015Q3

REPORT INFORMATION
  Report Type: Spontaneous
  Country: US (occurrence: US)
  Receive Date: 20150812
  Receipt Date: 20150812
  Transmission Date: 20151125
  Serious: No
  Sender: FDA-Public Use
  Company Number: US-GLAXOSMITHKLINE-US2015115082

PATIENT
  Age: 60 Year
  Sex: Female

DRUGS (7)
  1. KLONOPIN [Concomitant]
     Active Substance: CLONAZEPAM
  2. PROAIR HFA [Concomitant]
     Active Substance: ALBUTEROL SULFATE
  3. PERCOCET [Concomitant]
     Active Substance: ACETAMINOPHEN\OXYCODONE HYDROCHLORIDE
  4. PREDNISONE. [Concomitant]
     Active Substance: PREDNISONE
  5. ANORO ELLIPTA [Suspect]
     Active Substance: UMECLIDINIUM BROMIDE\VILANTEROL TRIFENATATE
     Indication: CHRONIC OBSTRUCTIVE PULMONARY DISEASE
     Dosage: 1 PUFF(S), 1D
     Route: 055
     Dates: start: 20150706
  6. TRAMADOL/ACETAMINOPHEN [Concomitant]
     Active Substance: ACETAMINOPHEN\TRAMADOL
  7. TRAZODONE [Concomitant]
     Active Substance: TRAZODONE HYDROCHLORIDE

REACTIONS (3)
  - Device use error [Unknown]
  - Medication error [Unknown]
  - Discomfort [Not Recovered/Not Resolved]

NARRATIVE: CASE EVENT DATE: 20150713
